FAERS Safety Report 8214336-X (Version None)
Quarter: 2012Q1

REPORT INFORMATION
  Report Type: 
  Country: None (occurrence: None)
  Receive Date: 20120316
  Receipt Date: 20120306
  Transmission Date: 20120608
  Serious: Yes (Other)
  Sender: FDA-Public Use
  Company Number: US-JNJFOC-20120305542

PATIENT
  Sex: Female
  Weight: 72.58 kg

DRUGS (4)
  1. CELEXA [Concomitant]
     Indication: DEPRESSION
     Route: 048
     Dates: start: 20060101
  2. CONCERTA [Suspect]
     Indication: ATTENTION DEFICIT/HYPERACTIVITY DISORDER
     Route: 048
     Dates: start: 20120215
  3. CONCERTA [Suspect]
     Route: 048
     Dates: start: 20110101, end: 20120130
  4. MULTIVITAMINS  WITH IRON [Concomitant]
     Indication: MEDICAL DIET
     Route: 048

REACTIONS (6)
  - THIRST [None]
  - DRUG DIVERSION [None]
  - DRUG SCREEN NEGATIVE [None]
  - DEHYDRATION [None]
  - DRUG DOSE OMISSION [None]
  - DIARRHOEA [None]
